FAERS Safety Report 8526024 (Version 2)
Quarter: 2012Q4

REPORT INFORMATION
  Report Type: 
  Country: BR (occurrence: BR)
  Receive Date: 20120423
  Receipt Date: 20121026
  Transmission Date: 20130627
  Serious: Yes (Hospitalization, Other)
  Sender: FDA-Public Use
  Company Number: BR-ASTRAZENECA-2012SE24750

PATIENT
  Age: 59 Year
  Sex: Male

DRUGS (7)
  1. ATACAND [Suspect]
     Indication: HYPERTENSION
     Route: 048
     Dates: start: 2006, end: 201112
  2. SELOZOK [Suspect]
     Route: 048
     Dates: start: 201112
  3. CRESTOR [Suspect]
     Route: 048
     Dates: start: 201112
  4. BRILINTA [Suspect]
     Route: 048
     Dates: start: 201112
  5. PAROXETIN [Concomitant]
  6. ENALAPRIL [Concomitant]
  7. SOMALGIN [Concomitant]

REACTIONS (4)
  - Myocardial infarction [Recovered/Resolved]
  - Angina pectoris [Recovered/Resolved]
  - Venous occlusion [Not Recovered/Not Resolved]
  - Fatigue [Recovered/Resolved]
